FAERS Safety Report 5130910-1 (Version None)
Quarter: 2006Q4

REPORT INFORMATION
  Report Type: 
  Country: None (occurrence: None)
  Receive Date: 20061017
  Receipt Date: 20061017
  Transmission Date: 20070319
  Serious: Yes (Other)
  Sender: FDA-Public Use
  Company Number: None

PATIENT
  Age: 47 Year
  Sex: Female
  Weight: 74.8435 kg

DRUGS (1)
  1. AMNESTEEM [Suspect]
     Indication: ACNE
     Dosage: 1 CAPSULE 2 TIMES DAILY PO
     Route: 048
     Dates: start: 20060817, end: 20061016

REACTIONS (3)
  - DECREASED ACTIVITY [None]
  - RASH [None]
  - TENDONITIS [None]
